FAERS Safety Report 12317341 (Version 4)
Quarter: 2016Q3

REPORT INFORMATION
  Report Type: Spontaneous
  Country: IL (occurrence: IL)
  Receive Date: 20160429
  Receipt Date: 20160817
  Transmission Date: 20161109
  Serious: Yes (Hospitalization, Other)
  Sender: FDA-Public Use
  Company Number: IL-SA-2016SA079426

PATIENT
  Age: 20 Month
  Sex: Male
  Weight: 11 kg

DRUGS (1)
  1. MYOZYME [Suspect]
     Active Substance: ALGLUCOSIDASE ALFA
     Indication: GLYCOGEN STORAGE DISEASE TYPE II
     Route: 042
     Dates: start: 201502

REACTIONS (10)
  - Dyspnoea [Not Recovered/Not Resolved]
  - Dysstasia [Not Recovered/Not Resolved]
  - Oxygen saturation abnormal [Not Recovered/Not Resolved]
  - Pneumonia [Unknown]
  - Parainfluenzae virus infection [Recovering/Resolving]
  - Condition aggravated [Not Recovered/Not Resolved]
  - Pyrexia [Recovered/Resolved]
  - Muscular weakness [Not Recovered/Not Resolved]
  - Condition aggravated [Not Recovered/Not Resolved]
  - Lung disorder [Recovering/Resolving]

NARRATIVE: CASE EVENT DATE: 2016
